FAERS Safety Report 5119511-9 (Version None)
Quarter: 2006Q4

REPORT INFORMATION
  Report Type: 
  Country: None (occurrence: None)
  Receive Date: 20061003
  Receipt Date: 20060928
  Transmission Date: 20070319
  Serious: Yes (Death, Hospitalization, Other)
  Sender: FDA-Public Use
  Company Number: US-BRISTOL-MYERS SQUIBB COMPANY-13524285

PATIENT
  Age: 70 Year
  Sex: Male
  Weight: 83 kg

DRUGS (16)
  1. PACLITAXEL [Suspect]
     Indication: NON-SMALL CELL LUNG CANCER
     Route: 042
     Dates: start: 20051209, end: 20051209
  2. CARBOPLATIN [Suspect]
     Indication: NON-SMALL CELL LUNG CANCER
     Route: 042
     Dates: start: 20051209, end: 20051209
  3. TLK286 [Suspect]
     Indication: NON-SMALL CELL LUNG CANCER
     Route: 042
     Dates: start: 20051209, end: 20051209
  4. GLUCOPHAGE [Concomitant]
  5. ASPIRIN [Concomitant]
  6. PLAVIX [Concomitant]
  7. ALLOPURINOL [Concomitant]
  8. LOTENSIN [Concomitant]
  9. MORPHINE [Concomitant]
  10. LIPITOR [Concomitant]
  11. DOXYCYCLINE [Concomitant]
  12. CIPROFLOXACIN [Concomitant]
  13. LEVAQUIN [Concomitant]
  14. MAGNESIUM CHLORIDE [Concomitant]
  15. DONEPEZIL HCL [Concomitant]
  16. NEUPOGEN [Concomitant]

REACTIONS (3)
  - CARDIO-RESPIRATORY ARREST [None]
  - HYPONATRAEMIA [None]
  - PANCYTOPENIA [None]
